FAERS Safety Report 7142403-0 (Version None)
Quarter: 2010Q4

REPORT INFORMATION
  Report Type: 
  Country: None (occurrence: None)
  Receive Date: 20101207
  Receipt Date: 20101201
  Transmission Date: 20110411
  Serious: Yes (Other)
  Sender: FDA-Public Use
  Company Number: US-PFIZER INC-2010162545

PATIENT
  Age: 18 Year
  Sex: Male
  Weight: 68.946 kg

DRUGS (3)
  1. EFFEXOR XR [Suspect]
     Indication: DEPRESSION
     Dates: start: 20100922, end: 20101124
  2. CITALOPRAM [Suspect]
     Indication: DEPRESSION
     Dosage: 40 MG, 1X/DAY
     Dates: start: 20100301, end: 20101124
  3. MINOCYCLINE [Concomitant]
     Indication: ACNE

REACTIONS (2)
  - ANXIETY [None]
  - SEROTONIN SYNDROME [None]
